FAERS Safety Report 10674230 (Version 1)
Quarter: 2014Q4

REPORT INFORMATION
  Report Type: Spontaneous
  Country: US (occurrence: None)
  Receive Date: 20141209
  Receipt Date: 20141209
  Transmission Date: 20150529
  Serious: Yes (Other)
  Sender: FDA-Public Use
  Company Number: 412918

PATIENT
  Age: 50 Year
  Sex: Male
  Weight: 63.5 kg

DRUGS (2)
  1. NOVOLOG [Suspect]
     Active Substance: INSULIN ASPART
     Indication: TYPE 1 DIABETES MELLITUS
     Dosage: SLIDING SCALE, SUBCUTANEOUS
     Route: 058
  2. LEVEMIR [Suspect]
     Active Substance: INSULIN DETEMIR
     Indication: TYPE 1 DIABETES MELLITUS
     Dosage: 18-20 UNITS IN THE MORNING AND 10 UNITS IAT NIGHT, SUBCUTANEOUS
     Route: 058
     Dates: start: 201401

REACTIONS (2)
  - Blood glucose increased [None]
  - Hypoglycaemic unconsciousness [None]

NARRATIVE: CASE EVENT DATE: 20140601
